FAERS Safety Report 15118816 (Version 1)
Quarter: 2018Q3

REPORT INFORMATION
  Report Type: Spontaneous
  Country: NZ (occurrence: NZ)
  Receive Date: 20180709
  Receipt Date: 20180709
  Transmission Date: 20181010
  Serious: Yes (Death, Life-Threatening, Other)
  Sender: FDA-Public Use
  Company Number: NZ-STRIDES ARCOLAB LIMITED-2018SP005648

PATIENT

DRUGS (7)
  1. TACROLIMUS. [Suspect]
     Active Substance: TACROLIMUS
     Indication: LIVER TRANSPLANT
     Dosage: UNK
     Route: 065
  2. AMOXICILLIN. [Concomitant]
     Active Substance: AMOXICILLIN
     Indication: PYREXIA
  3. GENTAMICIN. [Concomitant]
     Active Substance: GENTAMICIN
     Indication: PYREXIA
  4. AMOXICILLIN. [Concomitant]
     Active Substance: AMOXICILLIN
     Indication: CHOLANGITIS
     Dosage: UNK
     Route: 042
  5. GENTAMICIN. [Concomitant]
     Active Substance: GENTAMICIN
     Indication: CHOLANGITIS
     Dosage: UNK
     Route: 042
  6. AMPHOTERICIN [Concomitant]
     Active Substance: AMPHOTERICIN B
     Indication: ANTIFUNGAL PROPHYLAXIS
     Dosage: LIPOSOMAL
     Route: 065
  7. METHYLPREDNISOLONE. [Suspect]
     Active Substance: METHYLPREDNISOLONE
     Indication: LIVER TRANSPLANT
     Dosage: UNK
     Route: 065

REACTIONS (2)
  - Hyperammonaemia [Fatal]
  - Condition aggravated [Fatal]
